FAERS Safety Report 6471492-1 (Version None)
Quarter: 2009Q4

REPORT INFORMATION
  Report Type: 
  Country: None (occurrence: None)
  Receive Date: 20091203
  Receipt Date: 20080228
  Transmission Date: 20100525
  Serious: Yes (Hospitalization, Other)
  Sender: FDA-Public Use
  Company Number: US-ELI_LILLY_AND_COMPANY-US200802006884

PATIENT
  Age: 78 Year
  Sex: Male

DRUGS (5)
  1. ALIMTA [Suspect]
     Indication: NON-SMALL CELL LUNG CANCER
     Dosage: 1000 MG, UNK
     Dates: start: 20080214
  2. BEVACIZUMAB [Concomitant]
     Indication: NON-SMALL CELL LUNG CANCER
     Dates: start: 20080214
  3. VITAMIN B-12 [Concomitant]
     Dosage: UNK UNK, MONTHLY (1/M)
     Route: 030
  4. FOLIC ACID [Concomitant]
     Dosage: 1 MG, DAILY (1/D)
  5. DEXAMETHASONE TAB [Concomitant]
     Dosage: 20 MG, UNK
     Dates: start: 20080214

REACTIONS (6)
  - DEHYDRATION [None]
  - FOOD INTOLERANCE [None]
  - INTERSTITIAL LUNG DISEASE [None]
  - NAUSEA [None]
  - ORTHOSTATIC HYPOTENSION [None]
  - VOMITING [None]
